FAERS Safety Report 23307790 (Version 3)
Quarter: 2024Q1

REPORT INFORMATION
  Report Type: Spontaneous
  Country: MX (occurrence: MX)
  Receive Date: 20231218
  Receipt Date: 20240130
  Transmission Date: 20240410
  Serious: Yes (Other)
  Sender: FDA-Public Use
  Company Number: MX-ASTELLAS-2023EU005191

PATIENT
  Age: 33 Year
  Sex: Female

DRUGS (6)
  1. TACROLIMUS [Suspect]
     Active Substance: TACROLIMUS
     Indication: Renal transplant
     Dosage: 1 MG, TWICE DAILY (1 MG EVERY 12 HOURS)
     Route: 065
     Dates: start: 2005
  2. TACROLIMUS [Suspect]
     Active Substance: TACROLIMUS
     Dosage: 0.5 MG, TWICE DAILY (0.5 MG EVERY 12 HOURS)
     Route: 065
     Dates: start: 201702
  3. TACROLIMUS [Suspect]
     Active Substance: TACROLIMUS
     Dosage: 1 MG, TWICE DAILY (1 MG EVERY 12 HOURS)
     Route: 065
     Dates: start: 201706
  4. TACROLIMUS [Suspect]
     Active Substance: TACROLIMUS
     Dosage: UNK UNK, TWICE DAILY, DOSE A (2-0-1)
     Route: 065
     Dates: start: 2019, end: 2020
  5. MYCOPHENOLIC ACID [Suspect]
     Active Substance: MYCOPHENOLIC ACID
     Indication: Renal transplant
     Dosage: UNK UNK, UNKNOWN FREQ.
     Route: 065
  6. PREDNISONE [Suspect]
     Active Substance: PREDNISONE
     Indication: Renal transplant
     Dosage: UNK UNK, UNKNOWN FREQ.
     Route: 065

REACTIONS (6)
  - Gastroenteritis Escherichia coli [Unknown]
  - Urinary tract infection [Unknown]
  - Infection [Unknown]
  - Cardiac amyloidosis [Unknown]
  - Escherichia test positive [Unknown]
  - Overdose [Unknown]
